FAERS Safety Report 9267197 (Version 2)
Quarter: 2013Q2

REPORT INFORMATION
  Report Type: Spontaneous
  Country: GB (occurrence: GB)
  Receive Date: 20130502
  Receipt Date: 20130506
  Transmission Date: 20140414
  Serious: Yes (Death, Other)
  Sender: FDA-Public Use
  Company Number: PHFR2013GB002469

PATIENT
  Age: 74 Year
  Sex: Male

DRUGS (3)
  1. AFINITOR [Suspect]
     Indication: RENAL CELL CARCINOMA
     Dosage: 10 MG, QD
     Dates: start: 201209
  2. AFINITOR [Suspect]
     Dosage: 10 MG, QD
  3. AFINITOR [Suspect]
     Dosage: 5 MG, QD
     Dates: start: 201301, end: 201302

REACTIONS (8)
  - Renal cell carcinoma [Fatal]
  - Malignant neoplasm progression [Fatal]
  - Metastases to lung [Fatal]
  - Metastases to liver [Fatal]
  - General physical health deterioration [Unknown]
  - Fatigue [Unknown]
  - Anaemia [Unknown]
  - Stomatitis [Unknown]
